FAERS Safety Report 6235873-3 (Version None)
Quarter: 2009Q2

REPORT INFORMATION
  Report Type: 
  Country: None (occurrence: None)
  Receive Date: 20090619
  Receipt Date: 20090615
  Transmission Date: 20091009
  Serious: Yes (Other)
  Sender: FDA-Public Use
  Company Number: US-ASTRAZENECA-2009UW15363

PATIENT
  Age: 71 Year
  Sex: Male

DRUGS (1)
  1. SEROQUEL [Suspect]
     Indication: INSOMNIA
     Route: 048

REACTIONS (4)
  - DEMENTIA [None]
  - GAIT DISTURBANCE [None]
  - INCONTINENCE [None]
  - WHEELCHAIR USER [None]
